FAERS Safety Report 19010299 (Version 1)
Quarter: 2021Q1

REPORT INFORMATION
  Report Type: Report from Study
  Country: IN (occurrence: IN)
  Receive Date: 20210315
  Receipt Date: 20210315
  Transmission Date: 20210420
  Serious: Yes (Other)
  Sender: FDA-Public Use
  Company Number: IN-GILEAD-2021-0520579

PATIENT
  Age: 42 Year
  Sex: Male

DRUGS (1)
  1. TENOFOVIR DISOPROXIL FUMARATE. [Suspect]
     Active Substance: TENOFOVIR DISOPROXIL FUMARATE
     Indication: ANTIVIRAL PROPHYLAXIS
     Dosage: 300 MG
     Route: 065

REACTIONS (1)
  - Hepatitis B reactivation [Unknown]
